FAERS Safety Report 5201200-3 (Version None)
Quarter: 2007Q1

REPORT INFORMATION
  Report Type: 
  Country: None (occurrence: None)
  Receive Date: 20070108
  Receipt Date: 20061228
  Transmission Date: 20070707
  Serious: Yes (Other)
  Sender: FDA-Public Use
  Company Number: DE-ELI_LILLY_AND_COMPANY-DE_050916945

PATIENT
  Age: 53 Year
  Sex: Female

DRUGS (7)
  1. FLUOXETIN ^STADA^ [Concomitant]
     Route: 048
     Dates: start: 20050828, end: 20050912
  2. NERVOREGIN [Concomitant]
     Dosage: UNK, 3/W
  3. ANTIDEPRESSANTS [Concomitant]
  4. FLUCTIN [Suspect]
     Indication: DEPRESSION
     Dosage: 20 MG, 2/D
     Route: 048
     Dates: end: 20050827
  5. IBUPROFEN SLOW RELEASE [Concomitant]
     Dosage: UNK, UNKNOWN
  6. JODID 200 [Concomitant]
     Dosage: UNK, UNKNOWN
  7. VITAMIN A [Concomitant]
     Dosage: UNK, UNKNOWN

REACTIONS (12)
  - BLOOD PRESSURE FLUCTUATION [None]
  - BLOOD PROLACTIN INCREASED [None]
  - BRONCHITIS [None]
  - CARPAL TUNNEL SYNDROME [None]
  - CHEST DISCOMFORT [None]
  - COUGH [None]
  - DYSPNOEA [None]
  - HYPEREOSINOPHILIC SYNDROME [None]
  - PRURITUS [None]
  - RASH [None]
  - SKIN CHAPPED [None]
  - SLEEP DISORDER [None]
